FAERS Safety Report 4630300-1 (Version None)
Quarter: 2005Q2

REPORT INFORMATION
  Report Type: 
  Country: None (occurrence: None)
  Receive Date: 20050408
  Receipt Date: 20050328
  Transmission Date: 20051028
  Serious: Yes (Other)
  Sender: FDA-Public Use
  Company Number: 200510943JP

PATIENT
  Age: 74 Year
  Sex: Female

DRUGS (10)
  1. KETEK [Suspect]
     Indication: PHARYNGOLARYNGEAL PAIN
     Route: 048
     Dates: start: 20050324, end: 20050326
  2. PL GRAN. [Concomitant]
     Indication: PHARYNGOLARYNGEAL PAIN
     Route: 048
     Dates: start: 20050319, end: 20050326
  3. MYSLEE [Concomitant]
     Indication: INSOMNIA
     Route: 048
     Dates: start: 20050324, end: 20050326
  4. ORACEF [Concomitant]
     Indication: PHARYNGOLARYNGEAL PAIN
     Route: 048
     Dates: start: 20050319, end: 20050323
  5. PAROTIN [Concomitant]
     Indication: APTYALISM
     Dosage: DOSE: 2TABLETS
     Route: 048
     Dates: start: 19970910
  6. PAROTIN [Concomitant]
     Indication: THIRST
     Dosage: DOSE: 2TABLETS
     Route: 048
     Dates: start: 19970910
  7. HIBON [Concomitant]
     Indication: VITAMIN B2
     Dosage: DOSE: 2TABLETS
     Route: 048
     Dates: start: 19970910
  8. CINAL [Concomitant]
     Indication: DERMATITIS EXFOLIATIVE
     Dosage: DOSE: 2TABLETS
     Route: 048
     Dates: start: 19970910
  9. HALCION [Concomitant]
     Dosage: DOSE: 1TABLETS
     Route: 048
     Dates: start: 19970910
  10. EVOXAC [Concomitant]
     Indication: THIRST
     Dosage: DOSE: 2TABLETS
     Route: 048
     Dates: start: 19970910

REACTIONS (3)
  - AMNESIA [None]
  - LOSS OF CONSCIOUSNESS [None]
  - SEDATION [None]
